FAERS Safety Report 15888201 (Version 2)
Quarter: 2025Q4

REPORT INFORMATION
  Report Type: Spontaneous
  Country: EU (occurrence: EU)
  Receive Date: 20190130
  Receipt Date: 20251123
  Transmission Date: 20260117
  Serious: Yes (Other)
  Sender: AUROBINDO
  Company Number: EU-AUROBINDO-AUR-APL-2013-04943

PATIENT
  Age: 67 Year
  Sex: Female

DRUGS (5)
  1. LAMOTRIGINE [Interacting]
     Active Substance: LAMOTRIGINE
     Indication: Partial seizures
     Dosage: UNK
     Route: 065
  2. SODIUM PICOSULFATE [Interacting]
     Active Substance: SODIUM PICOSULFATE
     Indication: Laxative supportive care
     Dosage: UNK
     Route: 065
  3. SODIUM PICOSULFATE [Interacting]
     Active Substance: SODIUM PICOSULFATE
     Indication: Bowel preparation
  4. POLYETHYLENE GLYCOLS [Interacting]
     Active Substance: POLYETHYLENE GLYCOLS
     Indication: Laxative supportive care
     Dosage: UNK
     Route: 065
  5. POLYETHYLENE GLYCOLS [Interacting]
     Active Substance: POLYETHYLENE GLYCOLS
     Indication: Bowel preparation

REACTIONS (6)
  - Partial seizures [Recovered/Resolved]
  - Seizure [Recovered/Resolved]
  - Drug interaction [Recovered/Resolved]
  - Malabsorption [Unknown]
  - Drug level decreased [Unknown]
  - Drug ineffective [Unknown]
